FAERS Safety Report 21762015 (Version 1)
Quarter: 2022Q4

REPORT INFORMATION
  Report Type: Report from Study
  Country: US (occurrence: US)
  Receive Date: 20221221
  Receipt Date: 20221221
  Transmission Date: 20230113
  Serious: Yes (Other)
  Sender: FDA-Public Use
  Company Number: US-ABBVIE-4242775

PATIENT
  Age: 54 Year
  Sex: Female

DRUGS (1)
  1. SKYRIZI [Suspect]
     Active Substance: RISANKIZUMAB-RZAA
     Indication: Psoriasis
     Dosage: 150MG
     Route: 058
     Dates: start: 202201, end: 202211

REACTIONS (7)
  - Anaphylactic reaction [Recovered/Resolved]
  - Anaphylactic reaction [Unknown]
  - Discomfort [Unknown]
  - Arthralgia [Recovered/Resolved]
  - Skin burning sensation [Unknown]
  - Pruritus [Unknown]
  - Skin plaque [Unknown]

NARRATIVE: CASE EVENT DATE: 20220401
